FAERS Safety Report 5790213-9 (Version None)
Quarter: 2008Q2

REPORT INFORMATION
  Report Type: 
  Country: None (occurrence: None)
  Receive Date: 20080626
  Receipt Date: 20080318
  Transmission Date: 20081010
  Serious: No
  Sender: FDA-Public Use
  Company Number: A0705400A

PATIENT

DRUGS (1)
  1. ALLI [Suspect]
     Indication: DRUG USE FOR UNKNOWN INDICATION

REACTIONS (11)
  - ABDOMINAL DISTENSION [None]
  - ARTHRALGIA [None]
  - DISCOMFORT [None]
  - FLATULENCE [None]
  - FREQUENT BOWEL MOVEMENTS [None]
  - GASTROINTESTINAL DISORDER [None]
  - PAIN [None]
  - PAIN IN EXTREMITY [None]
  - RECTAL DISCHARGE [None]
  - STEATORRHOEA [None]
  - SWELLING [None]
